FAERS Safety Report 12393115 (Version 2)
Quarter: 2016Q4

REPORT INFORMATION
  Report Type: Spontaneous
  Country: US (occurrence: US)
  Receive Date: 20160523
  Receipt Date: 20161206
  Transmission Date: 20170207
  Serious: No
  Sender: FDA-Public Use
  Company Number: US-PFIZER INC-2016256986

PATIENT
  Age: 37 Year
  Sex: Male

DRUGS (3)
  1. FENTANYL. [Suspect]
     Active Substance: FENTANYL
     Dosage: UNK (25 MCG/HR PATCH 72 HOUR) (TWO PATCHES EVERY 72 HRS)
     Route: 062
  2. FENTANYL. [Suspect]
     Active Substance: FENTANYL
     Dosage: UNK (100 MCG/HR PATCH 72 HOUR) (12.5 PATCH)
     Route: 062
     Dates: start: 20160330
  3. DILAUDID [Suspect]
     Active Substance: HYDROMORPHONE HYDROCHLORIDE
     Indication: PAIN
     Dosage: 4 MG, AS NEEDED (EVERY 4 HOURS)
     Route: 048

REACTIONS (1)
  - Fatigue [Unknown]
